FAERS Safety Report 5363547-X (Version None)
Quarter: 2007Q2

REPORT INFORMATION
  Report Type: 
  Country: None (occurrence: None)
  Receive Date: 20070620
  Receipt Date: 20070613
  Transmission Date: 20071010
  Serious: Yes (Other)
  Sender: FDA-Public Use
  Company Number: AT-BRISTOL-MYERS SQUIBB COMPANY-13816343

PATIENT
  Age: 46 Year
  Sex: Male
  Weight: 74 kg

DRUGS (5)
  1. REYATAZ [Suspect]
     Indication: HIV INFECTION
     Route: 048
     Dates: start: 20031024, end: 20061130
  2. NORVIR [Suspect]
     Indication: HIV INFECTION
     Route: 048
     Dates: start: 20031024, end: 20061130
  3. KIVEXA [Concomitant]
     Route: 048
     Dates: start: 20050512
  4. RISPERDAL [Concomitant]
     Route: 048
     Dates: start: 20040930, end: 20070419
  5. METHADONE HCL [Concomitant]
     Dates: start: 20050514

REACTIONS (1)
  - ELECTROCARDIOGRAM QT CORRECTED INTERVAL PROLONGED [None]
